FAERS Safety Report 9549188 (Version 2)
Quarter: 2014Q4

REPORT INFORMATION
  Report Type: Report from Study
  Country: US (occurrence: US)
  Receive Date: 20130924
  Receipt Date: 20141001
  Transmission Date: 20150529
  Serious: No
  Sender: FDA-Public Use
  Company Number: US-009507513-1208USA001290

PATIENT
  Age: 25 Year
  Sex: Female

DRUGS (4)
  1. ZYRTEC [Suspect]
     Active Substance: CETIRIZINE HYDROCHLORIDE
     Indication: SEASONAL ALLERGY
     Dosage: 10 MG, UNK
  2. PRILOSEC [Concomitant]
     Active Substance: OMEPRAZOLE MAGNESIUM
     Indication: GASTROOESOPHAGEAL REFLUX DISEASE
     Dosage: 80 MG, UNK
  3. PEGINTERFERON ALFA-2B [Suspect]
     Active Substance: PEGINTERFERON ALFA-2B
     Dosage: 80 MICROGRAM, QW
     Dates: start: 20090612, end: 20100507
  4. REBETOL [Suspect]
     Active Substance: RIBAVIRIN
     Dosage: UNK
     Dates: start: 20090612, end: 20100514

REACTIONS (1)
  - Exposure during pregnancy [Recovered/Resolved]
